FAERS Safety Report 10548148 (Version 2)
Quarter: 2014Q4

REPORT INFORMATION
  Report Type: Spontaneous
  Country: CN (occurrence: CN)
  Receive Date: 20141028
  Receipt Date: 20141121
  Transmission Date: 20150529
  Serious: Yes (Other)
  Sender: FDA-Public Use
  Company Number: CN-PFIZER INC-2014295953

PATIENT
  Age: 40 Year
  Sex: Female
  Weight: 49 kg

DRUGS (5)
  1. CLONAZEPAM. [Suspect]
     Active Substance: CLONAZEPAM
     Indication: INSOMNIA
     Dosage: 4 MG, 1X/DAY
     Route: 048
     Dates: start: 20140423, end: 20140423
  2. QUETIAPINE FUMARATE. [Suspect]
     Active Substance: QUETIAPINE FUMARATE
     Dosage: 200 MG, 1X/DAY
     Route: 048
     Dates: start: 20140424, end: 20140617
  3. ZELDOX [Suspect]
     Active Substance: ZIPRASIDONE
     Indication: PSYCHOTIC DISORDER
     Dosage: 40 MG, 1X/DAY
     Route: 048
     Dates: start: 20140227, end: 20140617
  4. QUETIAPINE FUMARATE. [Suspect]
     Active Substance: QUETIAPINE FUMARATE
     Indication: PSYCHOTIC DISORDER
     Dosage: 400 MG, 1X/DAY
     Route: 048
     Dates: start: 20140227, end: 20140423
  5. CLONAZEPAM. [Suspect]
     Active Substance: CLONAZEPAM
     Dosage: 2 MG, 1X/DAY
     Route: 048
     Dates: start: 20140424, end: 20140617

REACTIONS (3)
  - Bladder pain [Recovering/Resolving]
  - Bladder dilatation [Recovering/Resolving]
  - Dysuria [Recovering/Resolving]

NARRATIVE: CASE EVENT DATE: 20140424
